FAERS Safety Report 20517854 (Version 1)
Quarter: 2022Q1

REPORT INFORMATION
  Report Type: Spontaneous
  Country: US (occurrence: US)
  Receive Date: 20220225
  Receipt Date: 20220225
  Transmission Date: 20220423
  Serious: Yes (Death, Hospitalization, Other)
  Sender: FDA-Public Use
  Company Number: US-APOTEX-2022AP003737

PATIENT
  Age: 79 Year
  Sex: Male

DRUGS (1)
  1. ATORVASTATIN [Suspect]
     Active Substance: ATORVASTATIN
     Indication: Cerebrovascular accident
     Dosage: 20 MILLIGRAM
     Route: 065
     Dates: end: 202002

REACTIONS (7)
  - Muscle necrosis [Fatal]
  - Respiratory failure [Fatal]
  - Asthenia [Fatal]
  - Quadriparesis [Unknown]
  - Dysarthria [Unknown]
  - Dyspnoea [Unknown]
  - Condition aggravated [Unknown]

NARRATIVE: CASE EVENT DATE: 20200101
